FAERS Safety Report 12875793 (Version 1)
Quarter: 2016Q4

REPORT INFORMATION
  Report Type: Spontaneous
  Country: US (occurrence: US)
  Receive Date: 20161024
  Receipt Date: 20161024
  Transmission Date: 20170207
  Serious: No
  Sender: FDA-Public Use
  Company Number: US-JAZZ-2016-US-015184

PATIENT
  Sex: Female

DRUGS (24)
  1. XYREM [Suspect]
     Active Substance: SODIUM OXYBATE
     Dosage: 2.25 G, BID
     Route: 048
     Dates: start: 200908, end: 2010
  2. CARAFATE [Concomitant]
     Active Substance: SUCRALFATE
  3. SKELAXIN [Concomitant]
     Active Substance: METAXALONE
  4. XANAX [Concomitant]
     Active Substance: ALPRAZOLAM
  5. XYREM [Suspect]
     Active Substance: SODIUM OXYBATE
     Indication: INSOMNIA
     Dosage: 2.25 G, BID
     Route: 048
     Dates: start: 200902, end: 2009
  6. XYREM [Suspect]
     Active Substance: SODIUM OXYBATE
     Dosage: 2.5 G, BID
     Route: 048
     Dates: start: 201512
  7. NORVASC [Concomitant]
     Active Substance: AMLODIPINE BESYLATE
  8. PRILOSEC [Concomitant]
     Active Substance: OMEPRAZOLE MAGNESIUM
  9. PROVIGIL [Concomitant]
     Active Substance: MODAFINIL
  10. SYNTHROID [Concomitant]
     Active Substance: LEVOTHYROXINE SODIUM
  11. XYREM [Suspect]
     Active Substance: SODIUM OXYBATE
     Dosage: DOSE ADJUSTMENTS
     Route: 048
     Dates: start: 201101, end: 201512
  12. VIVELLE-DOT [Concomitant]
     Active Substance: ESTRADIOL
  13. XYREM [Suspect]
     Active Substance: SODIUM OXYBATE
     Dosage: 2.5 G, BID
     Route: 048
     Dates: start: 200904, end: 2009
  14. FLEXERIL [Concomitant]
     Active Substance: CYCLOBENZAPRINE HYDROCHLORIDE
  15. XYREM [Suspect]
     Active Substance: SODIUM OXYBATE
     Dosage: 2.25 G, BID
     Route: 048
     Dates: start: 201010, end: 201101
  16. LIDODERM [Concomitant]
     Active Substance: LIDOCAINE
  17. NUVIGIL [Concomitant]
     Active Substance: ARMODAFINIL
  18. MULTIVITAMIN + MINERAL [Concomitant]
  19. PERCOCET [Concomitant]
     Active Substance: ACETAMINOPHEN\OXYCODONE HYDROCHLORIDE
  20. ECOTRIN [Concomitant]
     Active Substance: ASPIRIN
  21. FENTANYL. [Concomitant]
     Active Substance: FENTANYL
  22. TEMAZEPAM. [Concomitant]
     Active Substance: TEMAZEPAM
  23. ATROVENT [Concomitant]
     Active Substance: IPRATROPIUM BROMIDE
  24. TOPAMAX [Concomitant]
     Active Substance: TOPIRAMATE

REACTIONS (2)
  - Memory impairment [Not Recovered/Not Resolved]
  - Treatment noncompliance [Unknown]
